FAERS Safety Report 8716436 (Version 2)
Quarter: 2013Q4

REPORT INFORMATION
  Report Type: Spontaneous
  Country: US (occurrence: US)
  Receive Date: 20120810
  Receipt Date: 20131031
  Transmission Date: 20140711
  Serious: Yes (Hospitalization, Other)
  Sender: FDA-Public Use
  Company Number: US-009507513-1207USA011320

PATIENT
  Age: 50 Year
  Sex: Female

DRUGS (10)
  1. VYTORIN [Suspect]
     Dosage: 10/20
     Route: 048
  2. BENICAR [Suspect]
     Dosage: 20 MG, QD
     Route: 048
  3. BENICAR [Suspect]
     Dosage: 20 MG, BID
     Route: 048
  4. SOYBEAN [Concomitant]
  5. CLONAZEPAM [Concomitant]
  6. DIAZEPAM [Concomitant]
  7. CARBAMAZEPINE [Concomitant]
  8. SERTRALINE HYDROCHLORIDE [Concomitant]
  9. METFORMIN [Concomitant]
  10. LEVOMEPROMAZINE [Concomitant]

REACTIONS (6)
  - Hyperaemia [Unknown]
  - Gingival disorder [Unknown]
  - Depression [Unknown]
  - Hypercholesterolaemia [Unknown]
  - Drug ineffective [Unknown]
  - Oedema peripheral [Unknown]
